FAERS Safety Report 8922764 (Version 3)
Quarter: 2012Q4

REPORT INFORMATION
  Report Type: 
  Country: US (occurrence: US)
  Receive Date: 20121125
  Receipt Date: 20121226
  Transmission Date: 20130627
  Serious: Yes (Other)
  Sender: FDA-Public Use
  Company Number: US-BAYER-2012-119804

PATIENT
  Age: 25 Year
  Sex: Female

DRUGS (1)
  1. MIRENA [Suspect]
     Indication: CONTRACEPTION
     Dosage: 20 mcg/24hr, CONT
     Route: 015
     Dates: start: 20121025, end: 20121110

REACTIONS (11)
  - Pelvic pain [Recovered/Resolved]
  - Back pain [Recovered/Resolved]
  - Device issue [Recovered/Resolved]
  - Pyrexia [Recovered/Resolved]
  - Pyelonephritis [Recovered/Resolved]
  - Abdominal tenderness [Recovered/Resolved]
  - Endometritis [Recovered/Resolved]
  - Uterine infection [Recovered/Resolved]
  - Pain [Recovered/Resolved]
  - Urine odour abnormal [Recovered/Resolved]
  - Purulent discharge [Recovered/Resolved]
